FAERS Safety Report 7771930-8 (Version None)
Quarter: 2011Q3

REPORT INFORMATION
  Report Type: 
  Country: None (occurrence: None)
  Receive Date: 20110922
  Receipt Date: 20110418
  Transmission Date: 20111222
  Serious: No
  Sender: FDA-Public Use
  Company Number: US-ASTRAZENECA-2011SE22820

PATIENT
  Age: 54 Year
  Sex: Female

DRUGS (14)
  1. EMERON [Concomitant]
     Indication: RHEUMATOID ARTHRITIS
  2. ELAVIL [Suspect]
     Route: 048
  3. FLEXERIL [Concomitant]
     Indication: MUSCLE SPASMS
  4. ATENOLOL [Concomitant]
     Indication: BLOOD PRESSURE
  5. SEROQUEL [Suspect]
     Indication: BIPOLAR DISORDER
     Route: 048
  6. SEROQUEL [Suspect]
     Indication: DEPRESSION
     Route: 048
  7. OMEPRAZOLE [Concomitant]
     Indication: GASTRIC ULCER
  8. MEDRIN [Concomitant]
     Indication: MIGRAINE
  9. SEROQUEL [Suspect]
     Indication: SLEEP TERROR
     Route: 048
  10. PRILOSEC [Suspect]
     Route: 048
  11. SEROQUEL [Suspect]
     Indication: SLEEP DISORDER
     Route: 048
  12. XANAX [Concomitant]
     Indication: ANXIETY
  13. EFFEXOR XR [Concomitant]
  14. LORTAB [Concomitant]
     Indication: PAIN

REACTIONS (6)
  - OFF LABEL USE [None]
  - DRUG INEFFECTIVE [None]
  - INSOMNIA [None]
  - FATIGUE [None]
  - DRUG DOSE OMISSION [None]
  - ACTIVITIES OF DAILY LIVING IMPAIRED [None]
